FAERS Safety Report 15788815 (Version 1)
Quarter: 2019Q1

REPORT INFORMATION
  Report Type: Spontaneous
  Country: US (occurrence: US)
  Receive Date: 20190104
  Receipt Date: 20190104
  Transmission Date: 20190417
  Serious: Yes (Death, Life-Threatening, Other)
  Sender: FDA-Public Use
  Company Number: US-TORRENT-00007388

PATIENT
  Age: 27 Year
  Sex: Male

DRUGS (3)
  1. KRATOM [Suspect]
     Active Substance: HERBALS\MITRAGYNINE
     Indication: PRODUCT USED FOR UNKNOWN INDICATION
     Dosage: UNKNOWN
     Route: 048
  2. QUETIAPINE. [Suspect]
     Active Substance: QUETIAPINE
     Indication: PRODUCT USED FOR UNKNOWN INDICATION
     Dosage: PILL
     Route: 048
  3. VALPROIC ACID. [Concomitant]
     Active Substance: VALPROIC ACID
     Indication: PRODUCT USED FOR UNKNOWN INDICATION
     Dosage: UNKNOWN

REACTIONS (6)
  - Drug interaction [Fatal]
  - Toxicity to various agents [Fatal]
  - Tongue haemorrhage [Unknown]
  - Discharge [Unknown]
  - Seizure [Unknown]
  - Hyperthermia [Unknown]
